FAERS Safety Report 7448735-0 (Version None)
Quarter: 2011Q2

REPORT INFORMATION
  Report Type: 
  Country: None (occurrence: None)
  Receive Date: 20110429
  Receipt Date: 20100702
  Transmission Date: 20111010
  Serious: No
  Sender: FDA-Public Use
  Company Number: GB-ASTRAZENECA-2010SE31082

PATIENT
  Age: 87 Year
  Sex: Female

DRUGS (5)
  1. NEXIUM [Suspect]
     Indication: GASTROOESOPHAGEAL REFLUX DISEASE
     Route: 048
     Dates: start: 20020101
  2. VITAMIN D [Concomitant]
  3. LIBRIUM [Concomitant]
  4. ASPIRIN [Concomitant]
  5. BLOOD PRESSURE MEDICATION [Concomitant]

REACTIONS (4)
  - INFLUENZA [None]
  - COUGH [None]
  - SENSATION OF FOREIGN BODY [None]
  - ABDOMINAL DISCOMFORT [None]
